FAERS Safety Report 8475080-7 (Version None)
Quarter: 2012Q2

REPORT INFORMATION
  Report Type: 
  Country: None (occurrence: None)
  Receive Date: 20120628
  Receipt Date: 20120621
  Transmission Date: 20120825
  Serious: Yes (Hospitalization, Other)
  Sender: FDA-Public Use
  Company Number: GB-NOVOPROD-352580

PATIENT
  Age: 41 Year
  Sex: Male
  Weight: 113 kg

DRUGS (2)
  1. VICTOZA [Suspect]
     Indication: TYPE 2 DIABETES MELLITUS
     Dosage: 1.2 MG, QD
     Route: 058
     Dates: start: 20100901, end: 20120501
  2. SIMVASTATIN [Concomitant]
     Dosage: 40 MG, QD

REACTIONS (1)
  - THYROID ADENOMA [None]
